FAERS Safety Report 21195270 (Version 1)
Quarter: 2022Q3

REPORT INFORMATION
  Report Type: Spontaneous
  Country: CN (occurrence: None)
  Receive Date: 20220810
  Receipt Date: 20220810
  Transmission Date: 20221027
  Serious: Yes (Other)
  Sender: FDA-Public Use
  Company Number: 2022A278976

PATIENT
  Sex: Female

DRUGS (1)
  1. SYMBICORT [Suspect]
     Active Substance: BUDESONIDE\FORMOTEROL FUMARATE DIHYDRATE
     Indication: Bronchial hyperreactivity
     Dosage: UNKNOWN
     Route: 055

REACTIONS (5)
  - Lung neoplasm malignant [Unknown]
  - Tachycardia [Unknown]
  - Chest discomfort [Recovering/Resolving]
  - Chest pain [Recovering/Resolving]
  - Device leakage [Unknown]

NARRATIVE: CASE EVENT DATE: 20220101
